FAERS Safety Report 7877146-9 (Version None)
Quarter: 2011Q4

REPORT INFORMATION
  Report Type: 
  Country: None (occurrence: None)
  Receive Date: 20111031
  Receipt Date: 20111027
  Transmission Date: 20120403
  Serious: Yes (Other)
  Sender: FDA-Public Use
  Company Number: US-AMGEN-USASP2010008964

PATIENT
  Age: 86 Year
  Sex: Female
  Weight: 65.3 kg

DRUGS (4)
  1. NPLATE [Suspect]
     Indication: THROMBOCYTOPENIA
     Dates: start: 20100805, end: 20101119
  2. DEXAMETHASONE [Concomitant]
     Dosage: 40 MG, QD
     Route: 042
     Dates: start: 20101201, end: 20101201
  3. PREDNISONE [Concomitant]
     Indication: THROMBOCYTOPENIA
     Dosage: 40 MG, QD
  4. CORTICOSTEROIDS [Concomitant]
     Indication: THROMBOCYTOPENIA
     Dosage: UNK

REACTIONS (5)
  - BACK DISORDER [None]
  - DRUG INEFFECTIVE [None]
  - THERAPEUTIC RESPONSE DECREASED [None]
  - PETECHIAE [None]
  - PURPURA [None]
